FAERS Safety Report 7728711-0 (Version None)
Quarter: 2011Q3

REPORT INFORMATION
  Report Type: 
  Country: None (occurrence: None)
  Receive Date: 20110906
  Receipt Date: 20100409
  Transmission Date: 20111222
  Serious: No
  Sender: FDA-Public Use
  Company Number: US-BAYER-201019267NA

PATIENT
  Age: 29 Year
  Sex: Female

DRUGS (2)
  1. MIRENA [Suspect]
     Dosage: 20 MG/D, CONT
     Route: 015
     Dates: start: 20100331, end: 20100405
  2. MIRENA [Suspect]
     Indication: CONTRACEPTION
     Dosage: 20 ?G/D, CONT
     Route: 015
     Dates: start: 20100405, end: 20100409

REACTIONS (3)
  - DEVICE BREAKAGE [None]
  - DEVICE EXPULSION [None]
  - GENITAL HAEMORRHAGE [None]
